FAERS Safety Report 21601968 (Version 1)
Quarter: 2022Q4

REPORT INFORMATION
  Report Type: Spontaneous
  Country: US (occurrence: None)
  Receive Date: 20221115
  Receipt Date: 20221115
  Transmission Date: 20230113
  Serious: Yes (Hospitalization)
  Sender: FDA-Public Use
  Company Number: None

PATIENT
  Age: 41 Year
  Sex: Female

DRUGS (2)
  1. AMBRISENTAN [Suspect]
     Active Substance: AMBRISENTAN
     Indication: Pulmonary hypertension
     Dosage: FREQUENCY : DAILY;?
     Route: 048
     Dates: start: 20191010
  2. SILDENAFIL [Suspect]
     Active Substance: SILDENAFIL

REACTIONS (4)
  - Acute respiratory failure [None]
  - Chronic obstructive pulmonary disease [None]
  - Hypervolaemia [None]
  - Coronavirus infection [None]

NARRATIVE: CASE EVENT DATE: 20221113
